FAERS Safety Report 17472539 (Version 1)
Quarter: 2020Q1

REPORT INFORMATION
  Report Type: Spontaneous
  Country: IT (occurrence: IT)
  Receive Date: 20200228
  Receipt Date: 20200228
  Transmission Date: 20200409
  Serious: Yes (Death)
  Sender: FDA-Public Use
  Company Number: IT-ROCHE-2554529

PATIENT
  Age: 74 Year
  Sex: Male
  Weight: 69 kg

DRUGS (4)
  1. IRINOTECAN [Concomitant]
     Active Substance: IRINOTECAN
     Indication: RECTAL CANCER STAGE IV
     Route: 042
     Dates: start: 20170828, end: 20170919
  2. FLUOROURACIL. [Concomitant]
     Active Substance: FLUOROURACIL
     Indication: RECTAL CANCER STAGE IV
     Route: 040
     Dates: start: 20170828, end: 20170919
  3. AVASTIN [Suspect]
     Active Substance: BEVACIZUMAB
     Indication: RECTAL CANCER STAGE IV
     Route: 042
     Dates: start: 20170828, end: 20170919
  4. FLUOROURACIL. [Concomitant]
     Active Substance: FLUOROURACIL
     Route: 042
     Dates: start: 20170828, end: 20170919

REACTIONS (4)
  - Diarrhoea [Fatal]
  - Septic shock [Fatal]
  - Pelvic abscess [Fatal]
  - Proctalgia [Fatal]

NARRATIVE: CASE EVENT DATE: 20170929
